FAERS Safety Report 8733571 (Version 2)
Quarter: 2012Q4

REPORT INFORMATION
  Report Type: 
  Country: GB (occurrence: GB)
  Receive Date: 20120821
  Receipt Date: 20120904
  Transmission Date: 20130627
  Serious: Yes (Other)
  Sender: FDA-Public Use
  Company Number: GB-JNJFOC-20120807241

PATIENT
  Age: 17 Year
  Sex: Female
  Weight: 69 kg

DRUGS (3)
  1. XEPLION [Suspect]
     Indication: BIPOLAR DISORDER
     Route: 030
     Dates: start: 20120717, end: 201207
  2. XEPLION [Suspect]
     Indication: BIPOLAR DISORDER
     Route: 030
     Dates: start: 20120710, end: 201207
  3. PRIADEL [Concomitant]
     Indication: BIPOLAR DISORDER
     Route: 065
     Dates: start: 20120709

REACTIONS (3)
  - Local reaction [Recovered/Resolved]
  - Blood prolactin increased [Unknown]
  - Galactorrhoea [Unknown]
